FAERS Safety Report 13592304 (Version 5)
Quarter: 2017Q4

REPORT INFORMATION
  Report Type: Report from Study
  Country: FR (occurrence: FR)
  Receive Date: 20170530
  Receipt Date: 20171020
  Transmission Date: 20180320
  Serious: Yes (Hospitalization)
  Sender: FDA-Public Use
  Company Number: FR-BAXALTA-2017BLT004629

PATIENT
  Age: 15 Year
  Sex: Female
  Weight: 56 kg

DRUGS (17)
  1. METHOTREXATE. [Suspect]
     Active Substance: METHOTREXATE
     Indication: ACUTE LYMPHOCYTIC LEUKAEMIA
     Dosage: 15 MG, UNK
     Route: 037
     Dates: start: 20170418, end: 20170418
  2. VINCRISTINE [Suspect]
     Active Substance: VINCRISTINE
     Indication: ACUTE LYMPHOCYTIC LEUKAEMIA
     Dosage: 2 MG, UNK
     Route: 042
     Dates: start: 20170413, end: 20170413
  3. DAUNORUBICIN [Suspect]
     Active Substance: DAUNORUBICIN
     Indication: ACUTE LYMPHOCYTIC LEUKAEMIA
     Dosage: 46.5 MG, UNK
     Route: 042
     Dates: start: 20170413, end: 20170413
  4. DAUNORUBICIN [Suspect]
     Active Substance: DAUNORUBICIN
     Dosage: 46.5 MG, UNK
     Route: 042
     Dates: start: 20170504, end: 20170504
  5. PREDNISOLONE. [Suspect]
     Active Substance: PREDNISOLONE
     Indication: ACUTE LYMPHOCYTIC LEUKAEMIA
     Dosage: 644 MG, UNK
     Route: 048
     Dates: start: 20170406, end: 20170412
  6. METHYLPREDNISOLON                  /00049601/ [Suspect]
     Active Substance: METHYLPREDNISOLONE
     Indication: ACUTE LYMPHOCYTIC LEUKAEMIA
     Dosage: 1953 MG, UNK
     Route: 042
     Dates: start: 20170413, end: 20170503
  7. PEGASPARGASE [Suspect]
     Active Substance: PEGASPARGASE
     Dosage: 1940 IU, UNK
     Route: 042
     Dates: start: 20170501, end: 20170501
  8. DAUNORUBICIN [Suspect]
     Active Substance: DAUNORUBICIN
     Dosage: 46.5 MG, UNK
     Route: 042
     Dates: start: 20170427, end: 20170427
  9. HYDROCORTISONE. [Suspect]
     Active Substance: HYDROCORTISONE
     Indication: ACUTE LYMPHOCYTIC LEUKAEMIA
     Dosage: 15 MG, UNK
     Route: 037
     Dates: start: 20170418, end: 20170429
  10. VINCRISTINE [Suspect]
     Active Substance: VINCRISTINE
     Dosage: 2 MG, UNK
     Route: 042
     Dates: start: 20170427, end: 20170427
  11. VINCRISTINE [Suspect]
     Active Substance: VINCRISTINE
     Dosage: 2 MG, UNK
     Route: 042
     Dates: start: 20170504, end: 20170504
  12. DAUNORUBICIN [Suspect]
     Active Substance: DAUNORUBICIN
     Dosage: 46.5 MG, UNK
     Route: 042
     Dates: start: 20170420, end: 20170420
  13. CYTARABINE. [Suspect]
     Active Substance: CYTARABINE
     Indication: ACUTE LYMPHOCYTIC LEUKAEMIA
     Dosage: 30 MG, UNK
     Route: 037
     Dates: start: 20170418, end: 20170429
  14. PEGASPARGASE [Suspect]
     Active Substance: PEGASPARGASE
     Indication: ACUTE LYMPHOCYTIC LEUKAEMIA
     Dosage: 1940 IU, UNK
     Route: 042
     Dates: start: 20170417, end: 20170417
  15. VINCRISTINE [Suspect]
     Active Substance: VINCRISTINE
     Dosage: 2 MG, UNK
     Route: 042
     Dates: start: 20170420, end: 20170420
  16. METHOTREXATE. [Suspect]
     Active Substance: METHOTREXATE
     Dosage: 15 MG, UNK
     Route: 037
     Dates: start: 20170429, end: 20170429
  17. 6-MERCAPTOPURINE MONOHYDRATE [Suspect]
     Active Substance: MERCAPTOPURINE
     Indication: ACUTE LYMPHOCYTIC LEUKAEMIA
     Dosage: UNK
     Route: 065
     Dates: start: 20170503, end: 20170510

REACTIONS (2)
  - Hyperammonaemia [Recovered/Resolved]
  - Drug administration error [Unknown]

NARRATIVE: CASE EVENT DATE: 20170503
